FAERS Safety Report 6178591-2 (Version None)
Quarter: 2009Q2

REPORT INFORMATION
  Report Type: 
  Country: None (occurrence: None)
  Receive Date: 20090430
  Receipt Date: 20090416
  Transmission Date: 20091009
  Serious: Yes (Death)
  Sender: FDA-Public Use
  Company Number: 2009AL000343

PATIENT
  Age: 49 Year
  Sex: Female

DRUGS (10)
  1. METFORMIN HYDROCHLORIDE [Suspect]
     Indication: DIABETES MELLITUS
     Dosage: 2 GR;PO
     Route: 048
  2. AMISULPRIDE [Concomitant]
  3. INSULIN [Concomitant]
  4. TRAZODONE HCL [Concomitant]
  5. NULYTELY [Concomitant]
  6. DIAZEPAM [Concomitant]
  7. HYDROCORTISONE [Concomitant]
  8. SENNA [Concomitant]
  9. ZOPICLONE [Concomitant]
  10. QUETIAPINE [Concomitant]

REACTIONS (4)
  - DRUG TOXICITY [None]
  - OVERDOSE [None]
  - RENAL IMPAIRMENT [None]
  - SUDDEN DEATH [None]
